FAERS Safety Report 4789477-X (Version None)
Quarter: 2005Q4

REPORT INFORMATION
  Report Type: 
  Country: None (occurrence: None)
  Receive Date: 20051006
  Receipt Date: 20050630
  Transmission Date: 20060501
  Serious: Yes (Hospitalization)
  Sender: FDA-Public Use
  Company Number: 2005AP03582

PATIENT
  Age: 2 Month
  Sex: Male
  Weight: 8 kg

DRUGS (1)
  1. MEROPEN [Suspect]
     Indication: SEPSIS
     Route: 041
     Dates: start: 20050427, end: 20050430

REACTIONS (1)
  - HEPATOCELLULAR DAMAGE [None]
